FAERS Safety Report 11448580 (Version 2)
Quarter: 2015Q3

REPORT INFORMATION
  Report Type: Spontaneous
  Country: BR (occurrence: BR)
  Receive Date: 20150902
  Receipt Date: 20150910
  Transmission Date: 20151125
  Serious: Yes (Other)
  Sender: FDA-Public Use
  Company Number: PHHY2015BR102978

PATIENT
  Age: 37 Year
  Sex: Female
  Weight: 43 kg

DRUGS (2)
  1. RAZAPINA [Suspect]
     Active Substance: MIRTAZAPINE
     Indication: INSOMNIA
  2. RAZAPINA [Suspect]
     Active Substance: MIRTAZAPINE
     Indication: WEIGHT INCREASED
     Dosage: 30 MG, QD
     Route: 048
     Dates: start: 20150730

REACTIONS (7)
  - Tachycardia [Recovered/Resolved]
  - Feeling abnormal [Recovered/Resolved]
  - Arthralgia [Recovered/Resolved]
  - Pain in extremity [Recovered/Resolved]
  - Movement disorder [Recovered/Resolved]
  - Atrophy [Recovered/Resolved]
  - Off label use [Recovered/Resolved]
